FAERS Safety Report 24787114 (Version 1)
Quarter: 2024Q4

REPORT INFORMATION
  Report Type: Report from Study
  Country: CA (occurrence: CA)
  Receive Date: 20241230
  Receipt Date: 20241230
  Transmission Date: 20250115
  Serious: Yes (Other)
  Sender: SAMSUNG BIOEPIS
  Company Number: CA-SAMSUNG BIOEPIS-SB-2024-39278

PATIENT
  Age: 26 Year
  Sex: Male
  Weight: 86.5 kg

DRUGS (1)
  1. RENFLEXIS [Suspect]
     Active Substance: INFLIXIMAB-ABDA
     Indication: Crohn^s disease
     Dosage: DOSE REQUIRED: 432.5MG;?DOSE ADMINISTERED ON 19-DEC-2024: 450MG;
     Route: 042
     Dates: start: 20240328

REACTIONS (2)
  - Loss of consciousness [Recovered/Resolved]
  - Presyncope [Recovered/Resolved]

NARRATIVE: CASE EVENT DATE: 20241219
